FAERS Safety Report 8809907 (Version 2)
Quarter: 2012Q4

REPORT INFORMATION
  Report Type: Report from Study
  Country: CA (occurrence: CA)
  Receive Date: 20120926
  Receipt Date: 20121030
  Transmission Date: 20130627
  Serious: Yes (Hospitalization)
  Sender: FDA-Public Use
  Company Number: CA-TEVA-359263USA

PATIENT
  Age: 74 Year
  Sex: Female
  Weight: 69.9 kg

DRUGS (22)
  1. TREANDA [Suspect]
     Indication: NON-HODGKIN^S LYMPHOMA UNSPECIFIED HISTOLOGY INDOLENT
     Dosage: cyclic
     Route: 042
     Dates: start: 20120510, end: 20120831
  2. TREANDA [Suspect]
     Route: 042
     Dates: start: 20120607, end: 20120608
  3. TREANDA [Suspect]
     Route: 042
     Dates: start: 20120705, end: 20120706
  4. TREANDA [Suspect]
     Route: 042
     Dates: start: 20120802, end: 20120803
  5. TREANDA [Suspect]
     Route: 042
     Dates: start: 20120830, end: 20120831
  6. VALACICLOVIR [Concomitant]
     Indication: HERPES ZOSTER
     Route: 048
     Dates: start: 20030706
  7. BISOPROLOL [Concomitant]
     Indication: ARRHYTHMIA
     Dosage: 2.5 Milligram Daily;
     Route: 048
     Dates: start: 20050324
  8. VITAMIN D NOS [Concomitant]
     Indication: PROPHYLAXIS
     Dosage: 10000 IU (International Unit) Daily;
     Route: 048
     Dates: start: 200907
  9. PROCHLORPERAZINE [Concomitant]
     Indication: NAUSEA
     Dosage: 10 Milligram Daily;
     Route: 048
     Dates: start: 20120517, end: 20120526
  10. DEXAMETHASONE [Concomitant]
     Indication: NAUSEA
     Dosage: 4 Milligram Daily;
     Route: 048
     Dates: start: 20120708, end: 20120712
  11. DIMENHYDRINATE [Concomitant]
     Indication: NAUSEA
     Dosage: 50 Milligram Daily;
     Route: 048
     Dates: start: 20120608, end: 20120608
  12. DIMENHYDRINATE [Concomitant]
     Dosage: 50 Milligram Daily;
     Route: 048
     Dates: start: 20120802
  13. GINGER [Concomitant]
     Indication: NAUSEA
     Dosage: 500 Milligram Daily;
     Route: 048
     Dates: start: 20120720, end: 20120724
  14. GRANISETRON [Concomitant]
     Indication: PROPHYLAXIS OF NAUSEA AND VOMITING
     Dosage: 1 Milligram Daily;
     Route: 048
     Dates: start: 20120510, end: 20120511
  15. GRANISETRON [Concomitant]
     Dosage: 1 Milligram Daily;
     Route: 048
     Dates: start: 20120607, end: 20120608
  16. GRANISETRON [Concomitant]
     Dosage: 1 Milligram Daily;
     Route: 048
     Dates: start: 20120705, end: 20120706
  17. GRANISETRON [Concomitant]
     Dosage: 1 Milligram Daily;
     Route: 048
     Dates: start: 20120802, end: 20120803
  18. GRANISETRON [Concomitant]
     Dosage: 1 Milligram Daily;
     Route: 048
     Dates: start: 20120830, end: 20120831
  19. GRANISETRON [Concomitant]
     Route: 048
     Dates: start: 20120830, end: 20120831
  20. BACTRIM [Concomitant]
     Indication: INFECTION PROPHYLAXIS
     Dosage: 960 Milligram Daily;
     Route: 048
     Dates: start: 20110622
  21. FILGRASTIM [Concomitant]
     Indication: NEUTROPENIA
     Dosage: 300 Microgram Daily;
     Route: 058
     Dates: start: 20120907
  22. LEVOFLOXACIN [Concomitant]
     Indication: INFECTION PROPHYLAXIS
     Dosage: 1000 Milligram Daily;
     Route: 048
     Dates: start: 20120907

REACTIONS (1)
  - Interstitial lung disease [Recovered/Resolved]
